FAERS Safety Report 8495006 (Version 5)
Quarter: 2013Q4

REPORT INFORMATION
  Report Type: Report from Study
  Country: JP (occurrence: JP)
  Receive Date: 20120405
  Receipt Date: 20131210
  Transmission Date: 20140711
  Serious: Yes (Hospitalization, Other)
  Sender: FDA-Public Use
  Company Number: PHHY2012JP026087

PATIENT
  Age: 41 Year
  Sex: Female
  Weight: 69 kg

DRUGS (22)
  1. MYSLEE [Concomitant]
     Dosage: 1 DF, UNK
     Route: 048
     Dates: end: 20120413
  2. DEPAS [Concomitant]
     Dosage: 5 DF, UNK
     Route: 048
     Dates: end: 20120413
  3. CLOSTRIDIUM BUTYRICUM [Concomitant]
     Dosage: 3 DF, UNK
     Route: 048
     Dates: end: 20120413
  4. FLUITRAN [Concomitant]
     Dosage: 1 DF, UNK
     Route: 048
     Dates: end: 20120322
  5. HIRUDOID [Concomitant]
     Route: 062
     Dates: end: 20120407
  6. RHUMAB-E25 [Suspect]
     Indication: ASTHMA
     Dosage: 375 MG, BIW
     Route: 058
     Dates: start: 20120127
  7. RHUMAB-E25 [Suspect]
     Dosage: UNK
     Dates: start: 2012
  8. RHUMAB-E25 [Suspect]
     Dosage: UNK
     Route: 058
     Dates: start: 20120209
  9. RHUMAB-E25 [Suspect]
     Dosage: UNK
     Route: 058
     Dates: start: 20120223
  10. RHUMAB-E25 [Suspect]
     Dosage: UNK
     Route: 058
     Dates: start: 20120308, end: 20120308
  11. NEORAL [Suspect]
     Indication: ASTHMA
     Dosage: 1 DF, DAILY
     Route: 048
     Dates: end: 20120413
  12. SYMBICORT [Concomitant]
     Indication: ASTHMA
     Dosage: UNK
  13. PULMICORT [Concomitant]
     Indication: ASTHMA
     Dosage: UNK
  14. HOKUNALIN [Concomitant]
     Indication: ASTHMA
     Dosage: UNK
     Route: 062
  15. SINGULAIR [Concomitant]
     Indication: ASTHMA
     Dosage: UNK
     Route: 048
  16. ALESION [Concomitant]
     Indication: ASTHMA
     Dosage: UNK
     Route: 048
  17. IPD [Concomitant]
     Indication: ASTHMA
     Dosage: UNK
     Route: 048
  18. RIZABEN [Concomitant]
     Indication: ASTHMA
     Dosage: UNK
     Route: 048
  19. PREDONINE [Concomitant]
     Indication: ASTHMA
     Dosage: UNK
     Route: 048
  20. PROCATEROL HYDROCHLORIDE [Concomitant]
     Indication: ASTHMA
     Dosage: UNK
  21. BAKTAR [Concomitant]
     Indication: PROPHYLAXIS
     Dosage: 1 DF, UNK
     Route: 048
     Dates: end: 20120413
  22. PARIET [Concomitant]
     Indication: PROPHYLAXIS
     Dosage: 2 DF, UNK
     Route: 048
     Dates: end: 20120413

REACTIONS (9)
  - Anaphylactic reaction [Recovered/Resolved]
  - Laryngeal oedema [Unknown]
  - Laryngeal discomfort [Unknown]
  - Dyspnoea [Recovering/Resolving]
  - Eczema [Recovering/Resolving]
  - Flushing [Recovering/Resolving]
  - Pruritus generalised [Recovering/Resolving]
  - Feeling abnormal [Unknown]
  - Human anti-human antibody test [Unknown]
